FAERS Safety Report 25796972 (Version 3)
Quarter: 2025Q3

REPORT INFORMATION
  Report Type: Spontaneous
  Country: US (occurrence: US)
  Receive Date: 20250912
  Receipt Date: 20250918
  Transmission Date: 20251020
  Serious: Yes (Life-Threatening, Other)
  Sender: PFIZER
  Company Number: US-PFIZER INC-202500179596

PATIENT
  Age: 27 Year
  Sex: Female
  Weight: 56.689 kg

DRUGS (1)
  1. DEPO-PROVERA [Suspect]
     Active Substance: MEDROXYPROGESTERONE ACETATE
     Indication: Contraception
     Dosage: 1, EVERY 90 DAYS
     Route: 030

REACTIONS (2)
  - Malignant melanoma [Not Recovered/Not Resolved]
  - Meningioma malignant [Not Recovered/Not Resolved]

NARRATIVE: CASE EVENT DATE: 20130101
